FAERS Safety Report 5142544-3 (Version None)
Quarter: 2006Q4

REPORT INFORMATION
  Report Type: 
  Country: None (occurrence: None)
  Receive Date: 20061027
  Receipt Date: 20061016
  Transmission Date: 20070319
  Serious: Yes (Hospitalization)
  Sender: FDA-Public Use
  Company Number: 2006126273

PATIENT
  Age: 59 Year
  Sex: Male

DRUGS (2)
  1. FRAGMIN [Suspect]
     Indication: LUNG DISORDER
     Dosage: 0.9 ML (0.9 ML, 1 IN 1 D)
     Dates: start: 20060906, end: 20060914
  2. TEMODAR [Suspect]
     Indication: GLIOBLASTOMA
     Dosage: (400 MG), ORAL
     Route: 048

REACTIONS (11)
  - ASTHENIA [None]
  - CONFUSIONAL STATE [None]
  - DEEP VEIN THROMBOSIS [None]
  - ELECTROENCEPHALOGRAM ABNORMAL [None]
  - GLIOBLASTOMA [None]
  - HAEMORRHAGE INTRACRANIAL [None]
  - OEDEMA PERIPHERAL [None]
  - PARTIAL SEIZURES [None]
  - PULMONARY EMBOLISM [None]
  - SPEECH DISORDER [None]
  - URINARY INCONTINENCE [None]
